FAERS Safety Report 4989840-8 (Version None)
Quarter: 2006Q2

REPORT INFORMATION
  Report Type: 
  Country: None (occurrence: None)
  Receive Date: 20060503
  Receipt Date: 20060426
  Transmission Date: 20061013
  Serious: Yes (Hospitalization)
  Sender: FDA-Public Use
  Company Number: JP-AVENTIS-200611373JP

PATIENT
  Age: 62 Year
  Sex: Male

DRUGS (2)
  1. ALLEGRA [Suspect]
     Indication: RHINITIS SEASONAL
     Route: 048
     Dates: start: 20060323, end: 20060421
  2. ANTIHYPERTENSIVES [Concomitant]

REACTIONS (3)
  - ABDOMINAL DISCOMFORT [None]
  - JAUNDICE [None]
  - LIVER FUNCTION TEST ABNORMAL [None]
